FAERS Safety Report 4681697-8 (Version None)
Quarter: 2005Q2

REPORT INFORMATION
  Report Type: 
  Country: None (occurrence: None)
  Receive Date: 20050602
  Receipt Date: 20050520
  Transmission Date: 20051028
  Serious: Yes (Other)
  Sender: FDA-Public Use
  Company Number: 2005075961

PATIENT
  Age: 29 Year
  Sex: Male

DRUGS (4)
  1. SERTRALINE HCL [Suspect]
     Indication: BIPOLAR DISORDER
  2. PAROXETINE HCL [Suspect]
     Indication: ILL-DEFINED DISORDER
  3. FLUOXETINE [Suspect]
     Indication: ILL-DEFINED DISORDER
  4. LITHIUM CARBONATE [Concomitant]

REACTIONS (8)
  - DEPRESSED MOOD [None]
  - DYSPHORIA [None]
  - IMPAIRED WORK ABILITY [None]
  - INITIAL INSOMNIA [None]
  - IRRITABILITY [None]
  - MARITAL PROBLEM [None]
  - MIDDLE INSOMNIA [None]
  - SOCIAL PROBLEM [None]
